FAERS Safety Report 19019769 (Version 1)
Quarter: 2021Q1

REPORT INFORMATION
  Report Type: Spontaneous
  Country: FR (occurrence: FR)
  Receive Date: 20210316
  Receipt Date: 20210316
  Transmission Date: 20210420
  Serious: Yes (Other)
  Sender: FDA-Public Use
  Company Number: FR-US-PROVELL PHARMACEUTICALS LLC-9216940

PATIENT
  Sex: Female

DRUGS (2)
  1. LEVOTHYROX [Suspect]
     Active Substance: LEVOTHYROXINE
     Dosage: 100 (UNSPECIFIED UNITS)
     Dates: end: 20171223
  2. LEVOTHYROX [Suspect]
     Active Substance: LEVOTHYROXINE
     Indication: POST PROCEDURAL HYPOTHYROIDISM
     Dosage: 0.75 (UNSPECIFIED UNITS)

REACTIONS (24)
  - Drug intolerance [Recovering/Resolving]
  - Insomnia [Unknown]
  - Dizziness [Unknown]
  - Fatigue [Not Recovered/Not Resolved]
  - Malaise [Unknown]
  - Dyspnoea [Not Recovered/Not Resolved]
  - Disturbance in attention [Unknown]
  - Arthralgia [Not Recovered/Not Resolved]
  - Migraine [Unknown]
  - Amnesia [Unknown]
  - General physical health deterioration [Recovering/Resolving]
  - Gait disturbance [Not Recovered/Not Resolved]
  - Hemiplegia [Unknown]
  - Constipation [Unknown]
  - Feeling cold [Unknown]
  - Fall [Unknown]
  - Myalgia [Not Recovered/Not Resolved]
  - Weight increased [Not Recovered/Not Resolved]
  - Blindness unilateral [Unknown]
  - Liver disorder [Recovering/Resolving]
  - Alopecia [Unknown]
  - Musculoskeletal stiffness [Unknown]
  - Pain [Unknown]
  - Heat stroke [Unknown]
